FAERS Safety Report 5409233-9 (Version None)
Quarter: 2007Q3

REPORT INFORMATION
  Report Type: 
  Country: None (occurrence: None)
  Receive Date: 20070808
  Receipt Date: 20070808
  Transmission Date: 20080115
  Serious: Yes (Other)
  Sender: FDA-Public Use
  Company Number: None

PATIENT
  Age: 83 Year
  Sex: Male

DRUGS (1)
  1. CLOFARABINE [Suspect]
     Indication: LYMPHOMA
     Dosage: 4MG/M2 QD X 5 DAYS IV
     Route: 042
     Dates: start: 20070402, end: 20070406

REACTIONS (1)
  - RENAL FAILURE [None]
